FAERS Safety Report 7309289-2 (Version None)
Quarter: 2011Q1

REPORT INFORMATION
  Report Type: 
  Country: None (occurrence: None)
  Receive Date: 20110223
  Receipt Date: 20101022
  Transmission Date: 20110831
  Serious: No
  Sender: FDA-Public Use
  Company Number: US-BAUSCH-2010BL005997

PATIENT
  Age: 45 Year
  Sex: Female

DRUGS (1)
  1. DESMOPRESSIN ACETATE [Suspect]
     Indication: POLLAKIURIA
     Route: 045
     Dates: start: 20100928

REACTIONS (1)
  - DRUG INEFFECTIVE [None]
